FAERS Safety Report 9484193 (Version 2)
Quarter: 2013Q3

REPORT INFORMATION
  Report Type: Spontaneous
  Country: CA (occurrence: CA)
  Receive Date: 20130828
  Receipt Date: 20130828
  Transmission Date: 20140515
  Serious: Yes (Other)
  Sender: FDA-Public Use
  Company Number: CA-AMGEN-KDL360662

PATIENT
  Age: 70 Year
  Sex: Female
  Weight: 61.7 kg

DRUGS (2)
  1. ENBREL [Suspect]
     Indication: PSORIASIS
     Dosage: UNK UNK, 2 TIMES/WK
     Route: 065
     Dates: start: 20090719, end: 200912
  2. CALCIUM CARBONATE [Concomitant]
     Dosage: UNK UNK, QD
     Route: 048

REACTIONS (12)
  - Confusional state [Unknown]
  - Muscle twitching [Not Recovered/Not Resolved]
  - Feeling abnormal [Not Recovered/Not Resolved]
  - Memory impairment [Not Recovered/Not Resolved]
  - Lethargy [Not Recovered/Not Resolved]
  - Injection site warmth [Not Recovered/Not Resolved]
  - Dizziness [Unknown]
  - Injection site erythema [Not Recovered/Not Resolved]
  - Injection site swelling [Unknown]
  - Injection site pruritus [Not Recovered/Not Resolved]
  - Injection site reaction [Unknown]
  - Injection site bruising [Recovered/Resolved]
